FAERS Safety Report 11414152 (Version 1)
Quarter: 2015Q3

REPORT INFORMATION
  Report Type: Spontaneous
  Country: IN (occurrence: IN)
  Receive Date: 20150824
  Receipt Date: 20150824
  Transmission Date: 20151125
  Serious: Yes (Death, Other)
  Sender: FDA-Public Use
  Company Number: PHHY2015IN100298

PATIENT
  Age: 33 Year
  Sex: Female

DRUGS (3)
  1. PHENYTOIN. [Suspect]
     Active Substance: PHENYTOIN
     Indication: SEIZURE
     Dosage: 100 MG, TID
     Route: 065
  2. METRONIDAZOLE. [Suspect]
     Active Substance: METRONIDAZOLE
     Indication: TOXIC EPIDERMAL NECROLYSIS
     Route: 065
  3. VANCOMYCIN [Suspect]
     Active Substance: VANCOMYCIN
     Indication: TOXIC EPIDERMAL NECROLYSIS
     Route: 065

REACTIONS (7)
  - Periorbital oedema [Unknown]
  - Macule [Unknown]
  - Toxic epidermal necrolysis [Fatal]
  - Gingival erosion [Unknown]
  - Skin exfoliation [Unknown]
  - Tenderness [Unknown]
  - Conjunctival hyperaemia [Unknown]
